FAERS Safety Report 4654190-6 (Version None)
Quarter: 2005Q2

REPORT INFORMATION
  Report Type: 
  Country: None (occurrence: None)
  Receive Date: 20050504
  Receipt Date: 20050425
  Transmission Date: 20051028
  Serious: Yes (Other)
  Sender: FDA-Public Use
  Company Number: 2005042541

PATIENT
  Age: 90 Year
  Sex: Male
  Weight: 72.5755 kg

DRUGS (5)
  1. NEURONTIN [Suspect]
     Indication: ESSENTIAL TREMOR
     Dosage: 700 MG (3 IN 1 D) ORAL
     Route: 048
     Dates: start: 20040922, end: 20050101
  2. TERAZOSIN [Concomitant]
  3. LISINOPRIL [Concomitant]
  4. SIMVASTATIN [Concomitant]
  5. ALL OTHER THERAPEUTIC PRODUCTS [Concomitant]

REACTIONS (8)
  - ABASIA [None]
  - ASTHENIA [None]
  - CONDITION AGGRAVATED [None]
  - DYSSTASIA [None]
  - ESSENTIAL TREMOR [None]
  - FALL [None]
  - FEELING ABNORMAL [None]
  - MOVEMENT DISORDER [None]
